FAERS Safety Report 6342805-6 (Version None)
Quarter: 2009Q3

REPORT INFORMATION
  Report Type: 
  Country: None (occurrence: None)
  Receive Date: 20090821
  Receipt Date: 20090611
  Transmission Date: 20100115
  Serious: No
  Sender: FDA-Public Use
  Company Number: 8047650

PATIENT
  Age: 57 Year
  Sex: Female
  Weight: 75 kg

DRUGS (6)
  1. CIMZIA [Suspect]
     Indication: CROHN'S DISEASE
     Dosage: 400 MG SC
     Route: 058
     Dates: start: 20090528
  2. PENTASA [Concomitant]
  3. PAXIL [Concomitant]
  4. PRILOSEC [Concomitant]
  5. XANAX [Concomitant]
  6. BENTYL [Concomitant]

REACTIONS (1)
  - OEDEMA [None]
